FAERS Safety Report 5243885-1 (Version None)
Quarter: 2007Q1

REPORT INFORMATION
  Report Type: 
  Country: None (occurrence: None)
  Receive Date: 20070222
  Receipt Date: 20070212
  Transmission Date: 20070707
  Serious: Yes (Other)
  Sender: FDA-Public Use
  Company Number: US-NOVOPROD-252258

PATIENT
  Sex: Female
  Weight: 74.83 kg

DRUGS (15)
  1. ACTIVELLA [Suspect]
     Indication: MENOPAUSAL SYMPTOMS
     Dosage: UNK, UNK
     Dates: start: 20001128, end: 20010601
  2. PREMARIN [Suspect]
     Indication: MENOPAUSAL SYMPTOMS
     Dosage: .9 MG, UNK
     Dates: start: 19910410, end: 19941101
  3. PREMARIN [Suspect]
     Dosage: .625 MG, UNK
     Dates: start: 19910410, end: 19941101
  4. OGEN [Suspect]
     Indication: MENOPAUSAL SYMPTOMS
     Dosage: 1.25 MG, UNK
     Dates: start: 19911115, end: 19911201
  5. PROVERA [Suspect]
     Indication: MENOPAUSAL SYMPTOMS
     Dosage: 2.5 - 10 MG, UNK
     Dates: start: 19910410, end: 19990801
  6. ESTRATEST [Suspect]
     Indication: MENOPAUSAL SYMPTOMS
     Dosage: UNKNOWN
     Dates: start: 19911217, end: 19920501
  7. ESTRACE [Suspect]
     Indication: MENOPAUSAL SYMPTOMS
     Dosage: 1 MG, UNK
     Dates: start: 19920911, end: 19921001
  8. MEDROXYPROGESTERONE [Suspect]
     Indication: MENOPAUSAL SYMPTOMS
     Dosage: 10 MG, UNK
     Dates: start: 19930101, end: 19950101
  9. MENEST [Suspect]
     Indication: MENOPAUSAL SYMPTOMS
     Dosage: .3 MG, UNK
     Dates: start: 19991026, end: 20000501
  10. PREMPRO [Suspect]
     Indication: MENOPAUSAL SYMPTOMS
     Dosage: 0.625/2.5 MG, UNK
     Dates: start: 20000510, end: 20001101
  11. ESTRATAB [Suspect]
     Indication: MENOPAUSAL SYMPTOMS
     Dosage: .3 MG, UNK
     Dates: start: 19981120, end: 19991101
  12. PREMARIN [Concomitant]
     Indication: MENOPAUSAL SYMPTOMS
     Route: 067
     Dates: start: 19980922, end: 20001101
  13. PROGESTERONE [Concomitant]
     Indication: PREMENSTRUAL SYNDROME
     Dates: start: 19860101
  14. FEMHRT [Concomitant]
     Indication: MENOPAUSAL SYMPTOMS
     Dosage: UNK, UNK
     Dates: start: 20010321, end: 20010330
  15. CLIMARA [Suspect]
     Indication: MENOPAUSAL SYMPTOMS
     Dosage: .05 MG, UNK
     Dates: start: 19970722, end: 19980501

REACTIONS (1)
  - BREAST CANCER [None]
